FAERS Safety Report 17780633 (Version 2)
Quarter: 2020Q2

REPORT INFORMATION
  Report Type: Spontaneous
  Country: DE (occurrence: DE)
  Receive Date: 20200513
  Receipt Date: 20200515
  Transmission Date: 20200714
  Serious: Yes (Hospitalization, Other)
  Sender: FDA-Public Use
  Company Number: NVSC2020DE127995

PATIENT
  Age: 20 Year
  Sex: Male
  Weight: 70 kg

DRUGS (1)
  1. FILGRASTIM HEXAL 30 MU/0.5 ML SOLUTION FOR INJECTION OR INFUSION IN PR [Suspect]
     Active Substance: FILGRASTIM
     Indication: HAEMATOPOIETIC STEM CELL MOBILISATION
     Dosage: 480-0-300?G
     Route: 058
     Dates: start: 20200207, end: 20200211

REACTIONS (4)
  - Hypotonia [Recovering/Resolving]
  - Myocarditis [Recovering/Resolving]
  - Chest pain [Unknown]
  - Adverse reaction [Unknown]

NARRATIVE: CASE EVENT DATE: 202002
